FAERS Safety Report 5917087-7 (Version None)
Quarter: 2008Q4

REPORT INFORMATION
  Report Type: 
  Country: None (occurrence: None)
  Receive Date: 20081010
  Receipt Date: 20081010
  Transmission Date: 20090506
  Serious: No
  Sender: FDA-Public Use
  Company Number: None

PATIENT
  Sex: Female

DRUGS (1)
  1. OPTIRAY 350 [Suspect]
     Dosage: 100 ML IV
     Route: 042
     Dates: start: 20080930

REACTIONS (3)
  - DYSPNOEA [None]
  - EYE SWELLING [None]
  - PRURITUS [None]
